FAERS Safety Report 25131016 (Version 2)
Quarter: 2025Q2

REPORT INFORMATION
  Report Type: Report from Study
  Country: CA (occurrence: CA)
  Receive Date: 20250327
  Receipt Date: 20250416
  Transmission Date: 20250716
  Serious: Yes (Other)
  Sender: TAKEDA
  Company Number: CA-TAKEDA-2025TUS031324

PATIENT
  Age: 49 Year
  Sex: Female

DRUGS (9)
  1. VEDOLIZUMAB [Suspect]
     Active Substance: VEDOLIZUMAB
     Indication: Colitis ulcerative
  2. VEDOLIZUMAB [Suspect]
     Active Substance: VEDOLIZUMAB
     Dosage: 300 MILLIGRAM, Q4WEEKS
     Dates: start: 20250411
  3. MESALAMINE [Concomitant]
     Active Substance: MESALAMINE
  4. SUMATRIPTAN AND NAPROXEN SODIUM [Concomitant]
     Active Substance: NAPROXEN SODIUM\SUMATRIPTAN SUCCINATE
  5. UBROGEPANT [Concomitant]
     Active Substance: UBROGEPANT
  6. CAMBIA [Concomitant]
     Active Substance: DICLOFENAC POTASSIUM
  7. TOLFENAMIC ACID [Concomitant]
     Active Substance: TOLFENAMIC ACID
  8. CALCIUM [Concomitant]
     Active Substance: CALCIUM
  9. FERROUS FUMARATE [Concomitant]
     Active Substance: FERROUS FUMARATE

REACTIONS (2)
  - Colitis ulcerative [Not Recovered/Not Resolved]
  - Off label use [Unknown]

NARRATIVE: CASE EVENT DATE: 20250411
